FAERS Safety Report 5096852-5 (Version None)
Quarter: 2006Q3

REPORT INFORMATION
  Report Type: 
  Country: None (occurrence: None)
  Receive Date: 20060901
  Receipt Date: 20060901
  Transmission Date: 20061208
  Serious: Yes (Death)
  Sender: FDA-Public Use
  Company Number: None

PATIENT
  Age: 70 Year
  Sex: Female

DRUGS (6)
  1. IMATINIB MESYLATE [Suspect]
     Indication: GLIOBLASTOMA MULTIFORME
     Dosage: 400 MG QD
     Dates: start: 20060508, end: 20060731
  2. PTK [Suspect]
     Indication: GLIOBLASTOMA MULTIFORME
     Dosage: 750MG BID
     Dates: start: 20060502, end: 20060731
  3. HYDROXYUREA [Suspect]
     Indication: GLIOBLASTOMA MULTIFORME
     Dosage: 500 MG QD
     Dates: start: 20060508, end: 20060731
  4. PRILOSEC [Concomitant]
  5. POTASSIUM CHLORIDE [Concomitant]
  6. LASIX [Concomitant]

REACTIONS (8)
  - CONFUSIONAL STATE [None]
  - DISEASE PROGRESSION [None]
  - FATIGUE [None]
  - HEMIPARESIS [None]
  - NEUROLOGICAL SYMPTOM [None]
  - PETIT MAL EPILEPSY [None]
  - SOMNOLENCE [None]
  - TOOTH EXTRACTION [None]
